FAERS Safety Report 13909620 (Version 2)
Quarter: 2017Q4

REPORT INFORMATION
  Report Type: Spontaneous
  Country: US (occurrence: US)
  Receive Date: 20170828
  Receipt Date: 20171009
  Transmission Date: 20180320
  Serious: No
  Sender: FDA-Public Use
  Company Number: US-PFIZER INC-2017368727

PATIENT
  Age: 49 Year
  Sex: Female

DRUGS (3)
  1. METHOTREXATE SODIUM. [Suspect]
     Active Substance: METHOTREXATE SODIUM
     Dosage: 1.0 ML, WEEKLY
  2. ONDANSETRON [Suspect]
     Active Substance: ONDANSETRON
     Dosage: 8 MG, AS NEEDED (EVERY 8 HOURS)
  3. ADVIL [Suspect]
     Active Substance: IBUPROFEN
     Dosage: 1200 MG, 3X/DAY

REACTIONS (9)
  - Asthenia [Unknown]
  - Tenderness [Unknown]
  - Musculoskeletal stiffness [Unknown]
  - Laboratory test abnormal [Unknown]
  - Fatigue [Unknown]
  - Weight decreased [Unknown]
  - Arthralgia [Unknown]
  - Joint swelling [Unknown]
  - Grip strength decreased [Unknown]
